FAERS Safety Report 23295811 (Version 1)
Quarter: 2023Q4

REPORT INFORMATION
  Report Type: Spontaneous
  Country: CA (occurrence: CA)
  Receive Date: 20231214
  Receipt Date: 20231214
  Transmission Date: 20240110
  Serious: Yes (Other)
  Sender: FDA-Public Use
  Company Number: CA-002147023-PHHY2018CA176704

PATIENT
  Age: 53 Year
  Sex: Female

DRUGS (5)
  1. IRBESARTAN [Suspect]
     Active Substance: IRBESARTAN
     Indication: Hypertension
     Dosage: 1 DOSAGE FORM
     Route: 065
  2. XOLAIR [Suspect]
     Active Substance: OMALIZUMAB
     Dosage: 300 MG, EVERY 4 WEEKS
     Route: 058
     Dates: start: 20191112
  3. XOLAIR [Suspect]
     Active Substance: OMALIZUMAB
     Indication: Chronic spontaneous urticaria
     Dosage: 300 MG, EVERY 4 WEEKS
     Route: 058
     Dates: start: 20181129
  4. LIPITOR [Concomitant]
     Active Substance: ATORVASTATIN CALCIUM
     Indication: Product used for unknown indication
     Dosage: UNK
     Route: 065
  5. SPIRONOLACTONE [Concomitant]
     Active Substance: SPIRONOLACTONE
     Indication: Blood pressure abnormal
     Dosage: UNK
     Route: 048
     Dates: start: 202112

REACTIONS (21)
  - Diabetes mellitus [Unknown]
  - Fatigue [Unknown]
  - Pruritus [Recovered/Resolved]
  - Oropharyngeal pain [Unknown]
  - Somnolence [Unknown]
  - Weight decreased [Unknown]
  - Herpes zoster [Unknown]
  - Headache [Unknown]
  - Axillary pain [Unknown]
  - Chest pain [Unknown]
  - Blister [Unknown]
  - Breast pain [Unknown]
  - Pigmentation disorder [Unknown]
  - Sensitive skin [Unknown]
  - Rhinorrhoea [Unknown]
  - Urticaria [Recovered/Resolved]
  - Pain in extremity [Unknown]
  - COVID-19 [Unknown]
  - Cough [Unknown]
  - Sinusitis [Unknown]
  - Nasopharyngitis [Unknown]

NARRATIVE: CASE EVENT DATE: 20181130
